FAERS Safety Report 5869783-8 (Version None)
Quarter: 2008Q3

REPORT INFORMATION
  Report Type: 
  Country: None (occurrence: None)
  Receive Date: 20080902
  Receipt Date: 20080815
  Transmission Date: 20090109
  Serious: Yes (Hospitalization)
  Sender: FDA-Public Use
  Company Number: 2008S1006945

PATIENT
  Age: 53 Year
  Sex: Female
  Weight: 51.2565 kg

DRUGS (6)
  1. FLEET ENEMA (SODIUM PHOSPHATE) [Suspect]
     Indication: CONSTIPATION
     Dosage: 133 ML; X1; RTL
     Dates: start: 20080623, end: 20080623
  2. FLEET ENEMA (SODIUM PHOSPHATE) [Suspect]
  3. KLONOPIN [Concomitant]
  4. HYDROCHLOROTHIAZIDE [Concomitant]
  5. DESYREL [Concomitant]
  6. ATIVAN [Concomitant]

REACTIONS (10)
  - ABDOMINAL PAIN [None]
  - BURNING SENSATION [None]
  - DIARRHOEA [None]
  - FLATULENCE [None]
  - GASTRITIS [None]
  - HYPOKALAEMIA [None]
  - ILEUS [None]
  - MEDICAL DEVICE DISCOMFORT [None]
  - MUSCLE SPASMS [None]
  - PROCTALGIA [None]
